FAERS Safety Report 17193401 (Version 1)
Quarter: 2019Q4

REPORT INFORMATION
  Report Type: Spontaneous
  Country: AU (occurrence: AU)
  Receive Date: 20191223
  Receipt Date: 20191223
  Transmission Date: 20200122
  Serious: Yes (Other)
  Sender: FDA-Public Use
  Company Number: AU-JNJFOC-20191224367

PATIENT
  Age: 22 Year
  Sex: Female

DRUGS (2)
  1. INVEGA TRINZA [Suspect]
     Active Substance: PALIPERIDONE PALMITATE
     Indication: SCHIZOAFFECTIVE DISORDER
     Route: 030
     Dates: start: 201901
  2. INVEGA TRINZA [Suspect]
     Active Substance: PALIPERIDONE PALMITATE
     Dosage: 4 INJECTION
     Route: 030
     Dates: start: 20191202

REACTIONS (4)
  - Product use in unapproved indication [Unknown]
  - Substance abuse [Unknown]
  - Off label use [Unknown]
  - Psychotic symptom [Unknown]

NARRATIVE: CASE EVENT DATE: 2019
